FAERS Safety Report 19200188 (Version 1)
Quarter: 2021Q2

REPORT INFORMATION
  Report Type: Spontaneous
  Country: US (occurrence: US)
  Receive Date: 20210428
  Receipt Date: 20210428
  Transmission Date: 20210717
  Serious: Yes (Hospitalization)
  Sender: FDA-Public Use
  Company Number: None

PATIENT
  Sex: Male

DRUGS (8)
  1. SILDENAFIL. [Suspect]
     Active Substance: SILDENAFIL
     Indication: PRODUCT USED FOR UNKNOWN INDICATION
     Route: 048
  2. WARFARIN [Concomitant]
     Active Substance: WARFARIN
  3. LISINOPRIL. [Concomitant]
     Active Substance: LISINOPRIL
  4. POT CHLORIDE [Concomitant]
     Active Substance: POTASSIUM CHLORIDE
  5. FEROSUL [Concomitant]
     Active Substance: FERROUS SULFATE
  6. METOPROL SUC [Concomitant]
  7. TORSEMIDE. [Concomitant]
     Active Substance: TORSEMIDE
  8. STOOL SOFTNER [Concomitant]

REACTIONS (2)
  - Therapy interrupted [None]
  - Intensive care [None]
